FAERS Safety Report 14848102 (Version 1)
Quarter: 2018Q2

REPORT INFORMATION
  Report Type: Spontaneous
  Country: US (occurrence: US)
  Receive Date: 20180504
  Receipt Date: 20180504
  Transmission Date: 20180711
  Serious: Yes (Disabling, Other)
  Sender: FDA-Public Use
  Company Number: US-009507513-1804USA011440

PATIENT
  Sex: Male

DRUGS (5)
  1. PEGINTRON [Suspect]
     Active Substance: PEGINTERFERON ALFA-2B
     Indication: HEPATITIS C
     Dosage: UNK, PEN INJECTION
     Dates: start: 2005
  2. XARELTO [Concomitant]
     Active Substance: RIVAROXABAN
     Dosage: UNK
  3. REBETOL [Suspect]
     Active Substance: RIBAVIRIN
     Indication: HEPATITIS C
     Dosage: UNK
     Route: 048
     Dates: start: 2005
  4. PLAQUENIL [Concomitant]
     Active Substance: HYDROXYCHLOROQUINE SULFATE
     Dosage: UNK
  5. PREDNISONE. [Concomitant]
     Active Substance: PREDNISONE
     Dosage: UNK

REACTIONS (7)
  - Cholecystectomy [Not Recovered/Not Resolved]
  - Pulmonary thrombosis [Not Recovered/Not Resolved]
  - Raynaud^s phenomenon [Not Recovered/Not Resolved]
  - Systemic lupus erythematosus [Not Recovered/Not Resolved]
  - Rheumatoid arthritis [Not Recovered/Not Resolved]
  - Cutaneous lupus erythematosus [Not Recovered/Not Resolved]
  - Sjogren^s syndrome [Not Recovered/Not Resolved]

NARRATIVE: CASE EVENT DATE: 2017
